FAERS Safety Report 15931334 (Version 2)
Quarter: 2019Q1

REPORT INFORMATION
  Report Type: Spontaneous
  Country: BE (occurrence: BE)
  Receive Date: 20190207
  Receipt Date: 20190222
  Transmission Date: 20190417
  Serious: Yes (Hospitalization, Disabling)
  Sender: FDA-Public Use
  Company Number: BE-IPSEN BIOPHARMACEUTICALS, INC.-2019-01810

PATIENT
  Age: 42 Year
  Sex: Male

DRUGS (2)
  1. AZZALURE [Suspect]
     Active Substance: BOTULINUM TOXIN TYPE A
     Indication: SKIN WRINKLING
  2. AZZALURE [Suspect]
     Active Substance: BOTULINUM TOXIN TYPE A
     Indication: SKIN WRINKLING
     Dosage: 54 UNITS IN GLABELLAR LINES AND 15 UNITS EACH SIDE FOR CANTHUS LINES
     Dates: start: 20181106, end: 20181106

REACTIONS (7)
  - Medication error [Unknown]
  - Mydriasis [Unknown]
  - Headache [Unknown]
  - Dysphagia [Recovered/Resolved]
  - Ophthalmoplegia [Recovering/Resolving]
  - Photophobia [Unknown]
  - Ophthalmoplegia [Recovering/Resolving]

NARRATIVE: CASE EVENT DATE: 2018
